FAERS Safety Report 7110693-6 (Version None)
Quarter: 2010Q4

REPORT INFORMATION
  Report Type: 
  Country: None (occurrence: None)
  Receive Date: 20101118
  Receipt Date: 20101116
  Transmission Date: 20110411
  Serious: Yes (Hospitalization, Other)
  Sender: FDA-Public Use
  Company Number: A0879300A

PATIENT
  Age: 13 Year
  Sex: Male
  Weight: 75 kg

DRUGS (2)
  1. LAMICTAL [Suspect]
     Indication: FRONTAL LOBE EPILEPSY
     Dosage: 75MG PER DAY
     Route: 048
     Dates: start: 20100801
  2. VALPROIC ACID [Concomitant]
     Indication: EPILEPSY
     Dosage: 1000MG PER DAY
     Route: 048

REACTIONS (4)
  - LYMPHADENOPATHY [None]
  - PAIN [None]
  - PYREXIA [None]
  - SYNOVIAL CYST [None]
